FAERS Safety Report 22391079 (Version 3)
Quarter: 2023Q2

REPORT INFORMATION
  Report Type: Spontaneous
  Country: US (occurrence: US)
  Receive Date: 20230601
  Receipt Date: 20230629
  Transmission Date: 20230722
  Serious: Yes (Hospitalization)
  Sender: FDA-Public Use
  Company Number: US-002147023-NVSC2023US122124

PATIENT
  Age: 76 Year
  Sex: Female
  Weight: 64 kg

DRUGS (57)
  1. KYMRIAH [Suspect]
     Active Substance: TISAGENLECLEUCEL
     Indication: Diffuse large B-cell lymphoma
     Dosage: 10 ML, ONCE/SINGLE (6 X 10 ^8 AUTOLOGOUS ANTI CD19 CART T  CELLS IN 5% DMSO TOTAL VOLUME= 10-50 ML)
     Route: 042
     Dates: start: 20230306
  2. KEPPRA [Concomitant]
     Active Substance: LEVETIRACETAM
     Indication: Prophylaxis
     Dosage: UNK, BID
     Route: 065
  3. CEFEPIME [Concomitant]
     Active Substance: CEFEPIME HYDROCHLORIDE
     Indication: Bacterial infection
     Dosage: UNK (3/8-3/9)
     Route: 065
     Dates: start: 20230308, end: 20230309
  4. CEFEPIME [Concomitant]
     Active Substance: CEFEPIME HYDROCHLORIDE
     Dosage: 2000 MG, Q12H (25 ML/HR, OVER 4HOUR(S))
     Route: 042
     Dates: start: 20230308
  5. ZOSYN [Concomitant]
     Active Substance: PIPERACILLIN SODIUM\TAZOBACTAM SODIUM
     Indication: Product used for unknown indication
     Dosage: UNK ( (3/9-3/10))
     Route: 065
     Dates: start: 20230309, end: 20230310
  6. SODIUM CHLORIDE [Concomitant]
     Active Substance: SODIUM CHLORIDE
     Indication: Product used for unknown indication
     Dosage: 75 ML/HR (ROUTINE, OVER 13.3 HOUR(S))
     Route: 042
  7. MELOXICAM [Concomitant]
     Active Substance: MELOXICAM
     Indication: Product used for unknown indication
     Dosage: 1 DOSAGE FORM, QD
     Route: 048
     Dates: start: 20230307
  8. METOPROLOL SUCCINATE [Concomitant]
     Active Substance: METOPROLOL SUCCINATE
     Indication: Product used for unknown indication
     Dosage: 4 DOSAGE FORM, QD
     Route: 048
     Dates: start: 20230316
  9. LISINOPRIL [Concomitant]
     Active Substance: LISINOPRIL
     Indication: Product used for unknown indication
     Dosage: 1 DOSAGE FORM, QD
     Route: 048
     Dates: start: 20230316
  10. HYDRALAZINE [Concomitant]
     Active Substance: HYDRALAZINE HYDROCHLORIDE
     Indication: Blood pressure systolic increased
     Dosage: 0.25 ML, PRN (Q6HR)
     Route: 042
     Dates: start: 20230315
  11. MELATONIN [Concomitant]
     Active Substance: MELATONIN
     Indication: Sleep disorder
     Dosage: 2 DOSAGE FORM, QHS
     Route: 048
     Dates: start: 20230313
  12. MELATONIN [Concomitant]
     Active Substance: MELATONIN
     Dosage: 10 MG, ONCE/SINGLE (2 TAB)
     Route: 048
     Dates: start: 20230313, end: 20230313
  13. FLUTICASONE [Concomitant]
     Active Substance: FLUTICASONE
     Indication: Product used for unknown indication
     Dosage: 0.05 MG, BID
     Route: 045
     Dates: start: 20230312
  14. CIPRO [Concomitant]
     Active Substance: CIPROFLOXACIN HYDROCHLORIDE
     Indication: Prophylaxis
     Dosage: 1 DOSAGE FORM, Q12H
     Route: 065
     Dates: start: 20230310, end: 20230409
  15. PIPERACILLIN SODIUM\TAZOBACTAM SODIUM [Concomitant]
     Active Substance: PIPERACILLIN SODIUM\TAZOBACTAM SODIUM
     Indication: Product used for unknown indication
     Dosage: 4500 MG, Q8H (25 ML/HR, OVER 4 HOUR(S))
     Route: 042
     Dates: start: 20230309
  16. ACETAMINOPHEN [Concomitant]
     Active Substance: ACETAMINOPHEN
     Indication: Body temperature
     Dosage: 2 DOSAGE FORM, Q4H (PRN)
     Route: 048
     Dates: start: 20230308
  17. ACETAMINOPHEN [Concomitant]
     Active Substance: ACETAMINOPHEN
     Dosage: 650 MG (ON CALL X1 DOSE) (2 TAB)
     Route: 048
     Dates: start: 20230312, end: 20230312
  18. ACETAMINOPHEN [Concomitant]
     Active Substance: ACETAMINOPHEN
     Dosage: 650 MG, Q12H (ONCALL PRN)
     Route: 048
     Dates: start: 20230306, end: 20230306
  19. LORATADINE [Concomitant]
     Active Substance: LORATADINE
     Indication: Product used for unknown indication
     Dosage: 1 DOSAGE FORM, QD
     Route: 048
     Dates: start: 20230308
  20. INSULIN GLARGINE [Concomitant]
     Active Substance: INSULIN GLARGINE
     Indication: Product used for unknown indication
     Dosage: 16 UNIT, QHS
     Route: 065
     Dates: start: 20230306
  21. INSULIN GLARGINE [Concomitant]
     Active Substance: INSULIN GLARGINE
     Dosage: 12 UNIT, QHS
     Route: 065
     Dates: start: 20230307
  22. CELECOXIB [Concomitant]
     Active Substance: CELECOXIB
     Indication: Product used for unknown indication
     Dosage: 1 DOSAGE FORM, QD
     Route: 048
     Dates: start: 20230307
  23. LEVOTHYROXINE [Concomitant]
     Active Substance: LEVOTHYROXINE
     Indication: Product used for unknown indication
     Dosage: 1 DOSAGE FORM (Q0600)
     Route: 048
     Dates: start: 20230307
  24. INSULIN LISPRO [Concomitant]
     Active Substance: INSULIN LISPRO
     Indication: Supplementation therapy
     Dosage: UNK (TIDAC+HS)
     Route: 065
     Dates: start: 20230306
  25. DEXTROSE [Concomitant]
     Active Substance: DEXTROSE\DEXTROSE MONOHYDRATE
     Indication: Product used for unknown indication
     Dosage: 1 DOSAGE FORM, PRN
     Route: 048
     Dates: start: 20230306
  26. GLUCAGON [Concomitant]
     Active Substance: GLUCAGON
     Indication: Product used for unknown indication
     Dosage: 1 MG, PRN
     Route: 030
     Dates: start: 20230306
  27. DEXTROSE [Concomitant]
     Active Substance: DEXTROSE\DEXTROSE MONOHYDRATE
     Indication: Product used for unknown indication
     Dosage: 50 ML, PRN
     Route: 042
     Dates: start: 20230306
  28. DEXTROSE [Concomitant]
     Active Substance: DEXTROSE\DEXTROSE MONOHYDRATE
     Dosage: 25 ML, PRN
     Route: 042
     Dates: start: 20230306
  29. DEXTROSE [Concomitant]
     Active Substance: DEXTROSE\DEXTROSE MONOHYDRATE
     Indication: Product used for unknown indication
     Dosage: 16 G, PRN (4 TAB)
     Route: 048
     Dates: start: 20230306
  30. ALLOPURINOL [Concomitant]
     Active Substance: ALLOPURINOL
     Indication: Product used for unknown indication
     Dosage: 300 MG, QD
     Route: 048
     Dates: start: 20230306
  31. LEVETIRACETAM [Concomitant]
     Active Substance: LEVETIRACETAM
     Indication: Product used for unknown indication
     Dosage: 500 MG, BID
     Route: 048
     Dates: start: 20230306
  32. SALINE [Concomitant]
     Active Substance: SODIUM CHLORIDE
     Indication: Product used for unknown indication
     Dosage: 20 ML, PRN (CENTRAL LINE FLUSH- NORMAL LINE FLUSH)
     Route: 065
     Dates: start: 20230306
  33. DIPHENHYDRAMINE [Concomitant]
     Active Substance: DIPHENHYDRAMINE
     Indication: Pruritus
     Dosage: 25 MG, Q4H
     Route: 048
     Dates: start: 20230306
  34. DIPHENHYDRAMINE [Concomitant]
     Active Substance: DIPHENHYDRAMINE
     Dosage: 25 MG (ONCALL X 1 DOSE) (1 TAB)
     Route: 048
     Dates: start: 20230312, end: 20230313
  35. DIPHENHYDRAMINE [Concomitant]
     Active Substance: DIPHENHYDRAMINE
     Dosage: 12.5 MG, Q12H (ONCALL PRN)
     Route: 042
     Dates: start: 20230306, end: 20230306
  36. PROCHLORPERAZINE [Concomitant]
     Active Substance: PROCHLORPERAZINE
     Indication: Nausea
     Dosage: 10 MG, Q6H
     Route: 048
     Dates: start: 20230306
  37. ONDANSETRON [Concomitant]
     Active Substance: ONDANSETRON
     Indication: Nausea
     Dosage: 8 MG, Q8H (1 TAB)
     Route: 048
     Dates: start: 20230306
  38. MAALOX ANTACID [Concomitant]
     Active Substance: ALUMINUM HYDROXIDE\DIMETHICONE\MAGNESIUM HYDROXIDE
     Indication: Dyspepsia
     Dosage: 30 ML, Q4H (PRN)
     Route: 048
     Dates: start: 20230306
  39. HEPARIN [Concomitant]
     Active Substance: HEPARIN SODIUM
     Indication: Product used for unknown indication
     Dosage: 5 ML, ONCE/SINGLE
     Route: 042
     Dates: start: 20230316, end: 20230316
  40. HEPARIN [Concomitant]
     Active Substance: HEPARIN SODIUM
     Dosage: 5 ML, ONCE/SINGLE
     Route: 065
     Dates: start: 20230316, end: 20230316
  41. TOPROL XL [Concomitant]
     Active Substance: METOPROLOL SUCCINATE
     Indication: Product used for unknown indication
     Dosage: 200 MG, QD
     Route: 048
     Dates: start: 20230316
  42. POTASSIUM CHLORIDE [Concomitant]
     Active Substance: POTASSIUM CHLORIDE
     Indication: Product used for unknown indication
     Dosage: 20 MEQ, ONCE/SINGLE
     Route: 048
     Dates: start: 20230316, end: 20230316
  43. MAGNESIUM SULFATE [Concomitant]
     Active Substance: MAGNESIUM SULFATE
     Indication: Product used for unknown indication
     Dosage: 4 G, ONCE/SINGLE (OVER 4 HOURS)
     Route: 042
     Dates: start: 20230306, end: 20230306
  44. MAGNESIUM SULFATE [Concomitant]
     Active Substance: MAGNESIUM SULFATE
     Dosage: 2 G, ONCE/SINGLE
     Route: 042
     Dates: start: 20230311, end: 20230311
  45. MAGNESIUM SULFATE [Concomitant]
     Active Substance: MAGNESIUM SULFATE
     Dosage: 2 G, ONCE/SINGLE (OVER 2 HOURS)
     Route: 042
     Dates: start: 20230312, end: 20230312
  46. MAGNESIUM SULFATE [Concomitant]
     Active Substance: MAGNESIUM SULFATE
     Dosage: 2 G, ONCE/SINGLE (OVER 2 HOURSE)
     Route: 042
     Dates: start: 20230313, end: 20230313
  47. MAGNESIUM SULFATE [Concomitant]
     Active Substance: MAGNESIUM SULFATE
     Dosage: 2 G, ONCE/SINGLE (OVER 2 HOURS)
     Route: 042
     Dates: start: 20230316, end: 20230316
  48. MAGNESIUM SULFATE [Concomitant]
     Active Substance: MAGNESIUM SULFATE
     Dosage: 2 G, ONCE/SINGLE (OVER 2 HOURS)
     Route: 042
     Dates: start: 20230315, end: 20230315
  49. MAGNESIUM SULFATE [Concomitant]
     Active Substance: MAGNESIUM SULFATE
     Dosage: 4 G, QD (OVER 4 HOURS)
     Route: 042
     Dates: start: 20230314, end: 20230314
  50. SODIUM CHLORIDE [Concomitant]
     Active Substance: SODIUM CHLORIDE
     Indication: Product used for unknown indication
     Dosage: 500 ML, ONCE/SINGLE (OVER 30 MINS)
     Route: 042
     Dates: start: 20230310, end: 20230310
  51. SODIUM CHLORIDE [Concomitant]
     Active Substance: SODIUM CHLORIDE
     Dosage: 500 ML, ONCE/SINGLE (OVER 30 MINS)
     Route: 042
     Dates: start: 20230310, end: 20230310
  52. SODIUM CHLORIDE [Concomitant]
     Active Substance: SODIUM CHLORIDE
     Dosage: 500 ML, ONCE/SINGLE (OVER 30 MINS)
     Route: 042
     Dates: start: 20230313, end: 20230313
  53. SODIUM CHLORIDE [Concomitant]
     Active Substance: SODIUM CHLORIDE
     Dosage: 1000 ML, ONCE/SINGLE (OVER 1 HOURS) (NS BOLUS IVF)
     Route: 042
     Dates: start: 20230315, end: 20230315
  54. ALTEPLASE [Concomitant]
     Active Substance: ALTEPLASE
     Indication: Product used for unknown indication
     Dosage: 2 MG, ONCE/SINGLE
     Route: 048
     Dates: start: 20230314, end: 20230314
  55. ALTEPLASE [Concomitant]
     Active Substance: ALTEPLASE
     Dosage: 2 MG, ONCE/SINGLE
     Route: 042
     Dates: start: 20230306
  56. SODIUM ZIRCONIUM CYCLOSILICATE [Concomitant]
     Active Substance: SODIUM ZIRCONIUM CYCLOSILICATE
     Indication: Product used for unknown indication
     Dosage: 10 G, TID (1 PACKET)
     Route: 048
     Dates: start: 20230306, end: 20230307
  57. SODIUM ZIRCONIUM CYCLOSILICATE [Concomitant]
     Active Substance: SODIUM ZIRCONIUM CYCLOSILICATE
     Dosage: 10 G, TID (1 PACKET)
     Route: 048
     Dates: start: 20230306, end: 20230307

REACTIONS (35)
  - Cytokine release syndrome [Recovered/Resolved]
  - Pyrexia [Recovered/Resolved]
  - Infection [Unknown]
  - Blood sodium decreased [Unknown]
  - Blood chloride decreased [Unknown]
  - Blood glucose increased [Unknown]
  - Prothrombin time shortened [Unknown]
  - Blood fibrinogen increased [Unknown]
  - Fibrin D dimer increased [Unknown]
  - Blood bilirubin decreased [Unknown]
  - Monocyte count increased [Unknown]
  - Eosinophil count increased [Unknown]
  - Aspartate aminotransferase increased [Unknown]
  - Alanine aminotransferase increased [Unknown]
  - Blood alkaline phosphatase increased [Unknown]
  - Blood urea increased [Unknown]
  - Carbon dioxide decreased [Unknown]
  - Lymphocyte count increased [Unknown]
  - Band neutrophil percentage increased [Unknown]
  - Lymphocyte count decreased [Unknown]
  - Haematocrit decreased [Unknown]
  - Mean platelet volume decreased [Unknown]
  - Basophil count increased [Unknown]
  - Blood fibrinogen decreased [Unknown]
  - Blood potassium increased [Unknown]
  - Blood calcium decreased [Unknown]
  - Blood lactate dehydrogenase decreased [Unknown]
  - C-reactive protein increased [Unknown]
  - Interleukin level increased [Unknown]
  - Blood uric acid decreased [Unknown]
  - Neutrophil count increased [Unknown]
  - Neutrophil count decreased [Unknown]
  - Haemoglobin decreased [Unknown]
  - White blood cell count decreased [Unknown]
  - Red blood cell count decreased [Unknown]

NARRATIVE: CASE EVENT DATE: 20230306
